FAERS Safety Report 8382883-6 (Version None)
Quarter: 2012Q2

REPORT INFORMATION
  Report Type: 
  Country: None (occurrence: None)
  Receive Date: 20120503
  Receipt Date: 20120420
  Transmission Date: 20120825
  Serious: Yes (Other)
  Sender: FDA-Public Use
  Company Number: 2012PROUSA01305

PATIENT
  Age: 59 Year
  Sex: Male
  Weight: 89.7 kg

DRUGS (1)
  1. PROVENGE [Suspect]
     Indication: PROSTATE CANCER METASTATIC
     Dosage: 250 ML, SINGLE, INTRAVENOUS
     Route: 042
     Dates: start: 20120409, end: 20120409

REACTIONS (6)
  - THROAT TIGHTNESS [None]
  - MALAISE [None]
  - DYSPNOEA [None]
  - RASH GENERALISED [None]
  - VOMITING [None]
  - BLOOD PRESSURE DECREASED [None]
